FAERS Safety Report 7745149 (Version 8)
Quarter: 2012Q4

REPORT INFORMATION
  Report Type: 
  Country: CA (occurrence: CA)
  Receive Date: 20101231
  Receipt Date: 20121017
  Transmission Date: 20130627
  Serious: Yes (Death, Other)
  Sender: FDA-Public Use
  Company Number: PHHY2010CA03697

PATIENT
  Age: 73 Year
  Sex: Female

DRUGS (5)
  1. SANDOSTATIN LAR [Suspect]
     Indication: METASTATIC NEOPLASM
     Dosage: 20 mg, QMO
     Route: 030
     Dates: start: 20091222
  2. SANDOSTATIN LAR [Suspect]
     Dosage: 20 mg, Every 4 weeks
     Route: 030
  3. SANDOSTATIN LAR [Suspect]
     Dosage: 30 mg, every 4 weeks
     Route: 030
  4. SANDOSTATIN LAR [Suspect]
     Dosage: 60 mg, QMO
     Route: 030
  5. DIURETICS [Concomitant]

REACTIONS (13)
  - Death [Fatal]
  - Blood pressure increased [Unknown]
  - Dyspnoea exertional [Unknown]
  - Dyspnoea [Unknown]
  - Memory impairment [Unknown]
  - Visual impairment [Unknown]
  - Fatigue [Unknown]
  - Cough [Unknown]
  - Productive cough [Unknown]
  - Sputum discoloured [Unknown]
  - Gastrointestinal pain [Recovered/Resolved]
  - Diarrhoea [Recovered/Resolved]
  - Nausea [Unknown]
